FAERS Safety Report 8036693-X (Version None)
Quarter: 2012Q1

REPORT INFORMATION
  Report Type: 
  Country: None (occurrence: None)
  Receive Date: 20120111
  Receipt Date: 20120104
  Transmission Date: 20120608
  Serious: Yes (Hospitalization, Disabling)
  Sender: FDA-Public Use
  Company Number: GB-JNJFOC-20111207200

PATIENT
  Age: 83 Year
  Sex: Female

DRUGS (7)
  1. SIMVASTATIN [Interacting]
     Indication: PRODUCT USED FOR UNKNOWN INDICATION
     Route: 048
     Dates: end: 20111027
  2. ITRACONAZOLE [Suspect]
     Indication: PANCYTOPENIA
     Route: 048
     Dates: start: 20111004, end: 20111030
  3. ACYCLOVIR [Concomitant]
     Indication: PROPHYLAXIS
     Route: 048
     Dates: start: 20111005, end: 20111030
  4. DIPYRIDAMOLE [Concomitant]
     Indication: PRODUCT USED FOR UNKNOWN INDICATION
     Route: 048
     Dates: end: 20111001
  5. FLUTICASONE PROPIONATE/SALMETEROL [Concomitant]
     Indication: PRODUCT USED FOR UNKNOWN INDICATION
     Route: 055
  6. TRANEXAMIC ACID [Concomitant]
     Indication: PRODUCT USED FOR UNKNOWN INDICATION
     Route: 048
     Dates: start: 20111009, end: 20111030
  7. MEROPENEM [Concomitant]
     Indication: SEPSIS
     Route: 042
     Dates: start: 20111001, end: 20111008

REACTIONS (2)
  - MYOPATHY [None]
  - DRUG INTERACTION [None]
